FAERS Safety Report 20610838 (Version 1)
Quarter: 2022Q1

REPORT INFORMATION
  Report Type: Spontaneous
  Country: JP (occurrence: None)
  Receive Date: 20220318
  Receipt Date: 20220318
  Transmission Date: 20220423
  Serious: Yes (Hospitalization, Other)
  Sender: FDA-Public Use
  Company Number: JP-MICRO LABS LIMITED-ML2022-00867

PATIENT
  Age: 34 Year
  Sex: Male

DRUGS (6)
  1. DICLOFENAC [Suspect]
     Active Substance: DICLOFENAC
     Indication: Pyrexia
     Dosage: THREE TIMES A DAY FOR A WEEK
     Route: 054
  2. ESOMEPRAZOLE [Concomitant]
     Active Substance: ESOMEPRAZOLE
  3. AMOXICILLIN. [Concomitant]
     Indication: Bacterial infection
  4. IBUPROFEN [Concomitant]
     Active Substance: IBUPROFEN
     Indication: Bacterial infection
  5. LEVOFLOXACIN. [Concomitant]
     Indication: Bacterial infection
     Dosage: 500 MG/DAY WAS INITIATED ON DAY 6 OF ILLNESS
  6. CEFTRIAXONE [Concomitant]
     Active Substance: CEFTRIAXONE

REACTIONS (1)
  - Tubulointerstitial nephritis and uveitis syndrome [Recovered/Resolved]
